FAERS Safety Report 17309126 (Version 2)
Quarter: 2020Q1

REPORT INFORMATION
  Report Type: Spontaneous
  Country: US (occurrence: US)
  Receive Date: 20200123
  Receipt Date: 20200204
  Transmission Date: 20200409
  Serious: No
  Sender: FDA-Public Use
  Company Number: US-JNJFOC-20200129933

PATIENT
  Sex: Female
  Weight: 48.58 kg

DRUGS (1)
  1. SIMPONI ARIA [Suspect]
     Active Substance: GOLIMUMAB
     Indication: RHEUMATOID ARTHRITIS
     Dosage: WEEK 0 AND WEEK 4 THEN EVERY 8 WEEKS
     Route: 042
     Dates: start: 20191219

REACTIONS (2)
  - Localised infection [Not Recovered/Not Resolved]
  - Radiation skin injury [Recovering/Resolving]
